FAERS Safety Report 8487607-X (Version None)
Quarter: 2012Q3

REPORT INFORMATION
  Report Type: 
  Country: None (occurrence: None)
  Receive Date: 20120705
  Receipt Date: 20120626
  Transmission Date: 20120928
  Serious: Yes (Hospitalization)
  Sender: FDA-Public Use
  Company Number: US-NOVOPROD-349597

PATIENT
  Age: 14 Year
  Sex: Female
  Weight: 31.4 kg

DRUGS (3)
  1. PANCREASE                          /00014701/ [Concomitant]
     Indication: PRODUCT USED FOR UNKNOWN INDICATION
     Route: 048
  2. NORDITROPIN FLEXPRO [Suspect]
     Indication: BODY HEIGHT BELOW NORMAL
     Dosage: 1.3 MG
     Route: 058
     Dates: start: 20120406, end: 20120416
  3. NORDITROPIN FLEXPRO [Suspect]
     Dosage: UNK
     Route: 058
     Dates: start: 20120421

REACTIONS (2)
  - DYSPNOEA [None]
  - BLOOD GLUCOSE INCREASED [None]
